FAERS Safety Report 6393305-9 (Version None)
Quarter: 2009Q4

REPORT INFORMATION
  Report Type: 
  Country: None (occurrence: None)
  Receive Date: 20091008
  Receipt Date: 20090924
  Transmission Date: 20100525
  Serious: Yes (Other)
  Sender: FDA-Public Use
  Company Number: PHHY2009SE41458

PATIENT
  Sex: Female

DRUGS (1)
  1. ACLASTA [Suspect]
     Indication: OSTEOPOROSIS
     Dosage: 5 MG, UNK
     Route: 042
     Dates: start: 20081007

REACTIONS (8)
  - ARTHRALGIA [None]
  - EYE PAIN [None]
  - HEADACHE [None]
  - NAUSEA [None]
  - OPTIC NERVE INFARCTION [None]
  - PYREXIA [None]
  - VISUAL ACUITY REDUCED [None]
  - VOMITING [None]
